FAERS Safety Report 8257162-8 (Version None)
Quarter: 2012Q2

REPORT INFORMATION
  Report Type: 
  Country: None (occurrence: None)
  Receive Date: 20120403
  Receipt Date: 20120328
  Transmission Date: 20120825
  Serious: Yes (Hospitalization)
  Sender: FDA-Public Use
  Company Number: US-ABBOTT-12P-163-0919831-00

PATIENT
  Sex: Male
  Weight: 122.58 kg

DRUGS (4)
  1. HUMIRA [Suspect]
     Indication: INFLAMMATORY BOWEL DISEASE
  2. HUMIRA [Suspect]
     Indication: CROHN'S DISEASE
     Dates: start: 20110601, end: 20111001
  3. HUMIRA [Suspect]
     Indication: GASTROINTESTINAL INFLAMMATION
  4. HUMIRA [Suspect]
     Indication: CROHN'S DISEASE
     Dates: start: 20111001, end: 20111201

REACTIONS (6)
  - BACTERIAL INFECTION [None]
  - NASAL CONGESTION [None]
  - ABDOMINAL DISTENSION [None]
  - PAIN [None]
  - DIARRHOEA [None]
  - DRUG INEFFECTIVE [None]
